FAERS Safety Report 9370225 (Version 2)
Quarter: 2013Q3

REPORT INFORMATION
  Report Type: Spontaneous
  Country: IE (occurrence: IE)
  Receive Date: 20130626
  Receipt Date: 20130719
  Transmission Date: 20140515
  Serious: Yes (Hospitalization)
  Sender: FDA-Public Use
  Company Number: IE-JNJFOC-20130609399

PATIENT
  Sex: Female

DRUGS (2)
  1. INVEGA [Suspect]
     Indication: SCHIZOPHRENIA
     Route: 048
     Dates: start: 20130606, end: 20130618
  2. PARACETAMOL [Concomitant]
     Route: 065
     Dates: start: 20130410, end: 20130415

REACTIONS (2)
  - Hospitalisation [Unknown]
  - Exposure during pregnancy [Recovered/Resolved]
